FAERS Safety Report 6173908-7 (Version None)
Quarter: 2009Q2

REPORT INFORMATION
  Report Type: 
  Country: None (occurrence: None)
  Receive Date: 20090430
  Receipt Date: 20090420
  Transmission Date: 20091009
  Serious: Yes (Hospitalization)
  Sender: FDA-Public Use
  Company Number: ES-WYE-H09092909

PATIENT
  Age: 63 Year
  Sex: Male

DRUGS (4)
  1. AMIODARONE HCL [Suspect]
     Indication: ATRIAL FIBRILLATION
     Route: 042
     Dates: start: 20080811, end: 20080811
  2. OMEPRAZOLE [Concomitant]
     Indication: PROPHYLAXIS AGAINST GASTROINTESTINAL ULCER
     Route: 048
  3. URBASON [Concomitant]
     Indication: BRONCHOSPASM
     Route: 042
  4. LEVOFLOXACIN [Concomitant]
     Indication: BRONCHITIS
     Route: 048

REACTIONS (2)
  - BRONCHOSPASM [None]
  - CONDITION AGGRAVATED [None]
